FAERS Safety Report 9152681 (Version 1)
Quarter: 2013Q1

REPORT INFORMATION
  Report Type: Spontaneous
  Country: US (occurrence: US)
  Receive Date: 20130308
  Receipt Date: 20130308
  Transmission Date: 20140127
  Serious: Yes (Other)
  Sender: FDA-Public Use
  Company Number: CHPA2013US004202

PATIENT
  Age: 68 Year
  Sex: Female

DRUGS (3)
  1. EXCEDRIN TENSION HEADACHE [Suspect]
     Dosage: UNK, UNK
     Route: 048
  2. EXCEDRIN UNKNOWN [Suspect]
     Indication: HEADACHE
     Dosage: UNK, UNK
     Route: 048
  3. TYLENOL [Concomitant]
     Indication: HEADACHE
     Dosage: 2 UNK, UNK

REACTIONS (1)
  - Gastrooesophageal reflux disease [Unknown]
